FAERS Safety Report 6101013-4 (Version None)
Quarter: 2009Q1

REPORT INFORMATION
  Report Type: 
  Country: None (occurrence: None)
  Receive Date: 20090227
  Receipt Date: 20090216
  Transmission Date: 20090719
  Serious: Yes (Hospitalization)
  Sender: FDA-Public Use
  Company Number: KV200900192

PATIENT
  Age: 49 Year
  Sex: Female

DRUGS (2)
  1. MORPHINE SULFATE [Suspect]
     Indication: PAIN
     Dosage: 30 MG, QD, ORAL
     Route: 048
     Dates: start: 20081025, end: 20081029
  2. MORPHINE SULFATE [Suspect]
     Indication: PAIN
     Dosage: 15 MG, Q4H, ORAL
     Route: 048
     Dates: start: 20081025, end: 20081029

REACTIONS (5)
  - FOAMING AT MOUTH [None]
  - LETHARGY [None]
  - NERVE COMPRESSION [None]
  - PRODUCT QUALITY ISSUE [None]
  - UNRESPONSIVE TO STIMULI [None]
